FAERS Safety Report 5968300-1 (Version None)
Quarter: 2008Q4

REPORT INFORMATION
  Report Type: 
  Country: None (occurrence: None)
  Receive Date: 20081126
  Receipt Date: 20081120
  Transmission Date: 20090506
  Serious: Yes (Hospitalization)
  Sender: FDA-Public Use
  Company Number: CN-ASTRAZENECA-2008AP09002

PATIENT
  Sex: Male

DRUGS (2)
  1. IRESSA [Suspect]
     Indication: LUNG NEOPLASM MALIGNANT
     Route: 048
     Dates: start: 20080101, end: 20080101
  2. UNSPECIFIED ANTI HYPERTENSIVE [Concomitant]
     Indication: HYPERTENSION
     Route: 048
     Dates: end: 20081118

REACTIONS (1)
  - CHROMATURIA [None]
